FAERS Safety Report 5326746-9 (Version None)
Quarter: 2007Q2

REPORT INFORMATION
  Report Type: 
  Country: None (occurrence: None)
  Receive Date: 20070516
  Receipt Date: 20070504
  Transmission Date: 20071010
  Serious: Yes (Other)
  Sender: FDA-Public Use
  Company Number: DE-PFIZER INC-2006147185

PATIENT
  Sex: Female
  Weight: 77 kg

DRUGS (5)
  1. LYRICA [Suspect]
     Indication: HERPES ZOSTER
     Route: 048
     Dates: start: 20061113, end: 20061130
  2. TRAMADOL HCL [Concomitant]
     Route: 048
     Dates: start: 20061121, end: 20061128
  3. SOTALOL HCL [Concomitant]
  4. IBUPROFEN [Concomitant]
     Route: 048
     Dates: start: 20061128, end: 20061207
  5. TRANXILIUM [Concomitant]
     Route: 048

REACTIONS (4)
  - BLOOD PRESSURE INCREASED [None]
  - HOT FLUSH [None]
  - HYPERTHYROIDISM [None]
  - THYROID NEOPLASM [None]
